FAERS Safety Report 4509789-4 (Version None)
Quarter: 2004Q4

REPORT INFORMATION
  Report Type: 
  Country: None (occurrence: None)
  Receive Date: 20041124
  Receipt Date: 20040520
  Transmission Date: 20050328
  Serious: No
  Sender: FDA-Public Use
  Company Number: US-BRISTOL-MYERS SQUIBB COMPANY-12592408

PATIENT
  Age: 62 Year
  Sex: Male
  Weight: 109 kg

DRUGS (4)
  1. AVALIDE [Suspect]
     Indication: HYPERTENSION
     Dosage: 300 MG/12.5 MG
     Route: 048
     Dates: start: 20010601
  2. PRAVACHOL [Suspect]
     Indication: BLOOD CHOLESTEROL INCREASED
     Dosage: START DATE: JAN OR FEB 2001
     Route: 048
     Dates: start: 20010101
  3. TOPROL-XL [Concomitant]
  4. MULTIVITAMIN [Concomitant]
     Dosage: ^SOMETIMES^

REACTIONS (1)
  - WEIGHT INCREASED [None]
